FAERS Safety Report 8352190-6 (Version None)
Quarter: 2012Q2

REPORT INFORMATION
  Report Type: 
  Country: None (occurrence: None)
  Receive Date: 20120511
  Receipt Date: 20120502
  Transmission Date: 20120825
  Serious: Yes (Other)
  Sender: FDA-Public Use
  Company Number: JP-VERTEX PHARMACEUTICALS INC.-AE-2012-004360

PATIENT
  Age: 65 Year
  Sex: Female

DRUGS (11)
  1. TELAVIC (TELAPREVIR) [Suspect]
     Indication: HEPATITIS C
     Route: 048
     Dates: start: 20120315, end: 20120321
  2. PEGINTON [Concomitant]
     Route: 058
     Dates: start: 20120405
  3. REBETOL [Concomitant]
     Route: 048
     Dates: start: 20120329, end: 20120424
  4. LANSOPRAZOLE [Concomitant]
     Route: 048
     Dates: start: 20120319
  5. PEGINTON [Concomitant]
     Indication: HEPATITIS C
     Route: 058
     Dates: start: 20120315, end: 20120315
  6. TELAVIC (TELAPREVIR) [Suspect]
     Route: 048
     Dates: start: 20120329
  7. PEGINTON [Concomitant]
     Route: 058
     Dates: start: 20120329, end: 20120329
  8. REBETOL [Concomitant]
     Indication: HEPATITIS C
     Route: 048
     Dates: start: 20120315, end: 20120321
  9. URSO 250 [Concomitant]
     Route: 048
  10. REBETOL [Concomitant]
     Route: 048
     Dates: start: 20120425
  11. PRIMPERAN TAB [Concomitant]
     Route: 048
     Dates: start: 20120319

REACTIONS (2)
  - NEUTROPHIL COUNT DECREASED [None]
  - PLATELET COUNT DECREASED [None]
